FAERS Safety Report 6371558-0 (Version None)
Quarter: 2009Q3

REPORT INFORMATION
  Report Type: 
  Country: None (occurrence: None)
  Receive Date: 20090923
  Receipt Date: 20080227
  Transmission Date: 20100115
  Serious: Yes (Hospitalization, Other)
  Sender: FDA-Public Use
  Company Number: US-ASTRAZENECA-2007UW26653

PATIENT
  Age: 492 Month
  Sex: Female
  Weight: 71.5 kg

DRUGS (5)
  1. SEROQUEL [Suspect]
     Indication: SLEEP DISORDER
     Route: 048
     Dates: start: 20020101, end: 20030801
  2. METFORMIN HCL [Concomitant]
     Route: 048
     Dates: start: 20031013
  3. BENAZEPRIL HYDROCHLORIDE [Concomitant]
     Route: 048
     Dates: start: 20031013
  4. INSULIN [Concomitant]
     Dosage: 16 UNITS BEFORE BREAKFAST AND DINNER
     Route: 058
     Dates: start: 20031013
  5. LISINOPRIL [Concomitant]
     Route: 048
     Dates: start: 20031015

REACTIONS (7)
  - BLOOD CHOLESTEROL INCREASED [None]
  - DIABETES MELLITUS [None]
  - DIABETIC COMA [None]
  - DIABETIC KETOACIDOSIS [None]
  - HYPERTENSION [None]
  - RENAL FAILURE ACUTE [None]
  - TYPE 2 DIABETES MELLITUS [None]
